FAERS Safety Report 25849971 (Version 1)
Quarter: 2025Q3

REPORT INFORMATION
  Report Type: Spontaneous
  Country: US (occurrence: US)
  Receive Date: 20250926
  Receipt Date: 20250926
  Transmission Date: 20251020
  Serious: Yes (Disabling, Other)
  Sender: SPECGX
  Company Number: US-SPECGX-T202501624

PATIENT
  Sex: Female

DRUGS (6)
  1. OXYCODONE [Suspect]
     Active Substance: OXYCODONE
     Indication: Product used for unknown indication
     Route: 065
  2. OXYCODONE [Suspect]
     Active Substance: OXYCODONE
     Route: 045
  3. OXYCODONE [Suspect]
     Active Substance: OXYCODONE
     Route: 065
  4. PERCOCET [Suspect]
     Active Substance: ACETAMINOPHEN\OXYCODONE HYDROCHLORIDE
     Indication: Product used for unknown indication
     Route: 065
  5. PERCOCET [Suspect]
     Active Substance: ACETAMINOPHEN\OXYCODONE HYDROCHLORIDE
     Route: 045
  6. PERCOCET [Suspect]
     Active Substance: ACETAMINOPHEN\OXYCODONE HYDROCHLORIDE
     Route: 065

REACTIONS (6)
  - Imprisonment [Unknown]
  - Drug dependence [Unknown]
  - Drug abuse [Unknown]
  - Incorrect route of product administration [Unknown]
  - Drug diversion [Unknown]
  - Exposure during pregnancy [Unknown]
